FAERS Safety Report 9513698 (Version 3)
Quarter: 2015Q2

REPORT INFORMATION
  Report Type: Report from Study
  Country: DE (occurrence: DE)
  Receive Date: 20130910
  Receipt Date: 20150423
  Transmission Date: 20150821
  Serious: Yes (Hospitalization)
  Sender: FDA-Public Use
  Company Number: DE-BRISTOL-MYERS SQUIBB COMPANY-19360668

PATIENT
  Age: 64 Year
  Sex: Female
  Weight: 50 kg

DRUGS (3)
  1. FLUOROURACIL. [Suspect]
     Active Substance: FLUOROURACIL
     Indication: HEAD AND NECK CANCER
     Dosage: 2000MG/M2.(DAY 1+8),1000 MG/M2/DAY (DAY 1-4).
     Route: 042
     Dates: start: 20130802
  2. CETUXIMAB [Suspect]
     Active Substance: CETUXIMAB
     Indication: HEAD AND NECK CANCER
     Dosage: 250MG/M2,SIX 3-WEEK CLES OF CXIMAB,500MG/M2 WILL BE BIWEEKLY,(375MG) ON 16 AG13  RCNT INF16AU13
     Route: 042
     Dates: start: 20130802
  3. CISPLATIN. [Suspect]
     Active Substance: CISPLATIN
     Indication: HEAD AND NECK CANCER
     Dosage: (DAY 1+8),CISPLATIN 100 MG/M2 DAY 1.1ST DOSE 597.7,(149.4 MG)
     Route: 042
     Dates: start: 20130802

REACTIONS (1)
  - Neutropenia [Recovered/Resolved]
